FAERS Safety Report 25528938 (Version 1)
Quarter: 2025Q3

REPORT INFORMATION
  Report Type: Spontaneous
  Country: US (occurrence: None)
  Receive Date: 20250707
  Receipt Date: 20250707
  Transmission Date: 20251021
  Serious: Yes (Other)
  Sender: FDA-CTU
  Company Number: None

PATIENT
  Age: 28 Year
  Sex: Female
  Weight: 155.25 kg

DRUGS (13)
  1. MOUNJARO [Suspect]
     Active Substance: TIRZEPATIDE
     Indication: Diabetes mellitus
     Route: 058
     Dates: start: 20250606, end: 20250704
  2. Glucose monitor [Concomitant]
  3. TOPIRAMATE [Concomitant]
     Active Substance: TOPIRAMATE
  4. GLYCOPYRROLATE [Concomitant]
     Active Substance: GLYCOPYRROLATE
  5. ATORVASTATIN CALCIUM [Concomitant]
     Active Substance: ATORVASTATIN CALCIUM
  6. METFORMIN [Concomitant]
     Active Substance: METFORMIN HYDROCHLORIDE
  7. LOSARTAN POTASSIUM [Concomitant]
     Active Substance: LOSARTAN POTASSIUM
  8. CLONAZEPAM [Concomitant]
     Active Substance: CLONAZEPAM
  9. Hailey Fe [Concomitant]
  10. MINERALS\VITAMINS [Concomitant]
     Active Substance: MINERALS\VITAMINS
  11. FAMOTIDINE [Concomitant]
     Active Substance: FAMOTIDINE
  12. ALLEGRA [Concomitant]
     Active Substance: FEXOFENADINE HYDROCHLORIDE
  13. VITAMIN D3 [Concomitant]
     Active Substance: CHOLECALCIFEROL

REACTIONS (8)
  - Injection site rash [None]
  - Pruritus [None]
  - Swelling [None]
  - Erythema [None]
  - Contusion [None]
  - Feeling hot [None]
  - Insomnia [None]
  - Drug ineffective [None]

NARRATIVE: CASE EVENT DATE: 20250629
